FAERS Safety Report 25592412 (Version 1)
Quarter: 2025Q3

REPORT INFORMATION
  Report Type: Spontaneous
  Country: US (occurrence: US)
  Receive Date: 20250722
  Receipt Date: 20250722
  Transmission Date: 20251020
  Serious: No
  Sender: MYLAN
  Company Number: US-MYLANLABS-2025M1059653

PATIENT
  Age: 3 Decade
  Sex: Female

DRUGS (4)
  1. YUPELRI [Suspect]
     Active Substance: REVEFENACIN
     Indication: Product used for unknown indication
  2. YUPELRI [Suspect]
     Active Substance: REVEFENACIN
     Route: 065
  3. YUPELRI [Suspect]
     Active Substance: REVEFENACIN
     Route: 065
  4. YUPELRI [Suspect]
     Active Substance: REVEFENACIN

REACTIONS (1)
  - Arthralgia [Unknown]
